FAERS Safety Report 7075797-5 (Version None)
Quarter: 2010Q4

REPORT INFORMATION
  Report Type: 
  Country: None (occurrence: None)
  Receive Date: 20101101
  Receipt Date: 20101022
  Transmission Date: 20110411
  Serious: Yes (Hospitalization)
  Sender: FDA-Public Use
  Company Number: 2006BI010265

PATIENT
  Age: 63 Year
  Sex: Female
  Weight: 86 kg

DRUGS (4)
  1. AVONEX [Suspect]
     Indication: MULTIPLE SCLEROSIS
     Route: 030
     Dates: start: 19990526, end: 20040101
  2. AVONEX [Suspect]
     Route: 030
     Dates: start: 20040101, end: 20060217
  3. AVONEX [Suspect]
     Route: 030
     Dates: start: 20060611, end: 20060611
  4. AVONEX [Suspect]
     Route: 030
     Dates: start: 20070330

REACTIONS (7)
  - ABASIA [None]
  - BLOOD SODIUM DECREASED [None]
  - CYSTITIS [None]
  - FATIGUE [None]
  - PYREXIA [None]
  - RED BLOOD CELL COUNT DECREASED [None]
  - WHITE BLOOD CELL COUNT INCREASED [None]
